FAERS Safety Report 8867650 (Version 1)
Quarter: 2012Q4

REPORT INFORMATION
  Report Type: 
  Country: US (occurrence: US)
  Receive Date: 20121025
  Receipt Date: 20121025
  Transmission Date: 20130627
  Serious: No
  Sender: FDA-Public Use
  Company Number: US-AMGEN-USASP2012018033

PATIENT
  Age: 60 Year
  Sex: Female

DRUGS (10)
  1. ENBREL [Suspect]
     Indication: PRODUCT USED FOR UNKNOWN INDICATION
     Dosage: 50 mg, qwk
     Route: 058
  2. METHOTREXATE [Concomitant]
     Dosage: 2.5 mg, UNK
  3. NAPROXEN [Concomitant]
     Dosage: 500 mg, UNK
  4. LOMOTIL [Concomitant]
     Dosage: 2.5 mg, UNK
  5. CYMBALTA [Concomitant]
     Dosage: 20 mg, UNK
  6. LYRICA [Concomitant]
     Dosage: 100 mg, UNK
  7. DEXILANT [Concomitant]
     Dosage: 60 mg, UNK
  8. CITRACAL                           /00751520/ [Concomitant]
     Dosage: UNK
  9. FOLIC ACID [Concomitant]
     Dosage: 1 mg, UNK
  10. VITAMIN B 12 [Concomitant]
     Dosage: 1000 mug, UNK

REACTIONS (1)
  - Pneumonia [Unknown]
